FAERS Safety Report 24396537 (Version 1)
Quarter: 2024Q4

REPORT INFORMATION
  Report Type: Spontaneous
  Country: US (occurrence: US)
  Receive Date: 20241004
  Receipt Date: 20241004
  Transmission Date: 20250115
  Serious: Yes (Other)
  Sender: SHILPA MEDICARE
  Company Number: US-KOANAAP-SML-US-2024-00998

PATIENT
  Age: 73 Year
  Sex: Female

DRUGS (1)
  1. ZOLEDRONIC ACID [Suspect]
     Active Substance: ZOLEDRONIC ACID
     Indication: Osteoporosis
     Route: 065

REACTIONS (6)
  - Idiopathic orbital inflammation [Recovered/Resolved]
  - Eyelid ptosis [Recovered/Resolved]
  - Eye pain [Recovered/Resolved]
  - Myalgia [Unknown]
  - Chills [Unknown]
  - Arthralgia [Unknown]
